FAERS Safety Report 25015915 (Version 2)
Quarter: 2025Q3

REPORT INFORMATION
  Report Type: Spontaneous
  Country: EU (occurrence: EU)
  Receive Date: 20250227
  Receipt Date: 20250705
  Transmission Date: 20251020
  Serious: Yes (Hospitalization, Other)
  Sender: CELLTRION
  Company Number: EU-CELLTRION INC.-2025GR005431

PATIENT

DRUGS (7)
  1. RITUXIMAB [Suspect]
     Active Substance: RITUXIMAB
     Indication: Thrombotic thrombocytopenic purpura
  2. RITUXIMAB [Suspect]
     Active Substance: RITUXIMAB
     Indication: Hodgkin^s disease
  3. RITUXIMAB [Suspect]
     Active Substance: RITUXIMAB
     Route: 065
  4. RITUXIMAB [Suspect]
     Active Substance: RITUXIMAB
     Route: 042
  5. RIBAVIRIN [Concomitant]
     Active Substance: RIBAVIRIN
  6. METHYLPREDNISOLONE [Concomitant]
     Active Substance: METHYLPREDNISOLONE
  7. METHYLPREDNISOLONE [Concomitant]
     Active Substance: METHYLPREDNISOLONE

REACTIONS (6)
  - Hepatitis chronic persistent [Recovering/Resolving]
  - Immune-mediated hepatitis [Recovering/Resolving]
  - Hepatitis E [Recovering/Resolving]
  - Infection in an immunocompromised host [Unknown]
  - Hypogammaglobulinaemia [Recovering/Resolving]
  - Off label use [Unknown]
